FAERS Safety Report 17496233 (Version 2)
Quarter: 2020Q2

REPORT INFORMATION
  Report Type: Report from Study
  Country: None (occurrence: US)
  Receive Date: 20200303
  Receipt Date: 20200508
  Transmission Date: 20200713
  Serious: Yes (Other)
  Sender: FDA-Public Use
  Company Number: US-ABBVIE-20K-163-3297859-00

PATIENT
  Age: 52 Year
  Sex: Female

DRUGS (1)
  1. HUMIRA [Suspect]
     Active Substance: ADALIMUMAB
     Indication: PSORIATIC ARTHROPATHY
     Route: 058

REACTIONS (10)
  - Loss of consciousness [Unknown]
  - Musculoskeletal pain [Unknown]
  - Catheterisation cardiac [Unknown]
  - Limb discomfort [Unknown]
  - Tongue disorder [Unknown]
  - Mental impairment [Unknown]
  - Nausea [Unknown]
  - Back pain [Unknown]
  - Contusion [Unknown]
  - Dyspnoea [Unknown]

NARRATIVE: CASE EVENT DATE: 202002
